FAERS Safety Report 8431584-4 (Version None)
Quarter: 2012Q2

REPORT INFORMATION
  Report Type: 
  Country: None (occurrence: None)
  Receive Date: 20120323
  Receipt Date: 20110624
  Transmission Date: 20120825
  Serious: Yes (Hospitalization)
  Sender: FDA-Public Use
  Company Number: 163-21880-11063575

PATIENT
  Age: 72 Year
  Sex: Female

DRUGS (3)
  1. REVLIMID [Suspect]
     Indication: MULTIPLE MYELOMA
     Dosage: 25 MG, DAILY FOR 21 DAYS, PO 15-10MG, DAILY, PO 25 MG, DAILY FOR 21 DAYS, PO
     Route: 048
     Dates: start: 20110501
  2. REVLIMID [Suspect]
     Indication: MULTIPLE MYELOMA
     Dosage: 25 MG, DAILY FOR 21 DAYS, PO 15-10MG, DAILY, PO 25 MG, DAILY FOR 21 DAYS, PO
     Route: 048
     Dates: start: 20091101, end: 20110101
  3. REVLIMID [Suspect]
     Indication: MULTIPLE MYELOMA
     Dosage: 25 MG, DAILY FOR 21 DAYS, PO 15-10MG, DAILY, PO 25 MG, DAILY FOR 21 DAYS, PO
     Route: 048
     Dates: start: 20090728, end: 20090101

REACTIONS (1)
  - BRONCHITIS [None]
